FAERS Safety Report 6511444 (Version 3)
Quarter: 2013Q2

REPORT INFORMATION
  Report Type: Spontaneous
  Country: FR (occurrence: None)
  Receive Date: 20071210
  Receipt Date: 20130416
  Transmission Date: 20140414
  Serious: Yes (Hospitalization)
  Sender: FDA-Public Use
  Company Number: FRP07001132

PATIENT
  Age: 75 Year
  Sex: Female

DRUGS (10)
  1. ACTONEL [Suspect]
     Indication: OSTEOPOROSIS
     Dosage: 35 MG, 1/WEEK,ORAL
     Route: 048
     Dates: end: 20070703
  2. CALCIUM CARBONATE\VITAMIN D [Suspect]
     Dosage: 880 UNIT, DAILY, ORAL
     Route: 048
  3. ATORVASTATIN CALCIUM [Suspect]
     Dosage: 20 MG, QD, PO
     Route: 048
     Dates: start: 20070416, end: 20070703
  4. KARDEGIC /00002703(ACETYLSALICYLATE LYSINE) 160MG [Suspect]
     Route: 048
     Dates: start: 200703, end: 20070705
  5. ACETAMINOPHEN\PROPOXYPHENE HYDROCHLORIDE [Suspect]
     Route: 048
     Dates: end: 20070703
  6. SECTRAL [Suspect]
     Route: 048
  7. AMISULPRIDE [Suspect]
     Route: 048
     Dates: start: 20070704
  8. FOLIC ACID [Suspect]
  9. DITROPAN [Concomitant]
  10. IMOVANE (ZOPICLONE) [Concomitant]

REACTIONS (2)
  - Hepatitis [None]
  - Cholestasis [None]
